FAERS Safety Report 14531501 (Version 4)
Quarter: 2018Q3

REPORT INFORMATION
  Report Type: Spontaneous
  Country: US (occurrence: US)
  Receive Date: 20180214
  Receipt Date: 20180705
  Transmission Date: 20181010
  Serious: No
  Sender: FDA-Public Use
  Company Number: US-PFIZER INC-2018062151

PATIENT
  Age: 75 Year
  Sex: Male

DRUGS (3)
  1. INLYTA [Suspect]
     Active Substance: AXITINIB
     Dosage: 5 MG, 3X/DAY
     Route: 048
     Dates: start: 20180119
  2. INLYTA [Suspect]
     Active Substance: AXITINIB
     Dosage: 5 MG, 2X/DAY (1 IN AM, 2 IN PM)
     Route: 048
     Dates: start: 20180120
  3. INLYTA [Suspect]
     Active Substance: AXITINIB
     Indication: RENAL CANCER
     Dosage: 5 MG, 2X/DAY
     Route: 048

REACTIONS (10)
  - Dysphonia [Unknown]
  - Amnesia [Unknown]
  - Cognitive disorder [Unknown]
  - Weight decreased [Unknown]
  - Balance disorder [Unknown]
  - Diarrhoea [Unknown]
  - Tremor [Unknown]
  - Dyspnoea [Unknown]
  - Pain [Unknown]
  - Decreased appetite [Unknown]

NARRATIVE: CASE EVENT DATE: 20180405
